FAERS Safety Report 6320096-X (Version None)
Quarter: 2009Q3

REPORT INFORMATION
  Report Type: 
  Country: None (occurrence: None)
  Receive Date: 20090822
  Receipt Date: 20081016
  Transmission Date: 20100115
  Serious: No
  Sender: FDA-Public Use
  Company Number: US-ABBOTT-08P-163-0482627-00

PATIENT
  Sex: Female

DRUGS (8)
  1. NIASPAN [Suspect]
     Indication: BLOOD CHOLESTEROL
     Route: 048
     Dates: start: 20080925, end: 20081010
  2. NIASPAN [Suspect]
     Route: 048
     Dates: start: 20081010
  3. ATORVASTATIN CALCIUM [Concomitant]
     Indication: DRUG USE FOR UNKNOWN INDICATION
  4. KAPSOVIT [Concomitant]
     Indication: DRUG USE FOR UNKNOWN INDICATION
  5. CIPROFLOXACIN HCL [Concomitant]
     Indication: GASTRIC INFECTION
     Dates: start: 20081010
  6. CIPROFLOXACIN HCL [Concomitant]
     Indication: CYSTITIS
  7. METRONIDAZOLE [Concomitant]
     Indication: GASTRIC INFECTION
     Dates: start: 20081010
  8. METRONIDAZOLE [Concomitant]
     Indication: CYSTITIS

REACTIONS (4)
  - ERYTHEMA [None]
  - FLUSHING [None]
  - HEADACHE [None]
  - PRURITUS [None]
